FAERS Safety Report 19481004 (Version 1)
Quarter: 2021Q2

REPORT INFORMATION
  Report Type: Report from Study
  Country: None (occurrence: LB)
  Receive Date: 20210630
  Receipt Date: 20210630
  Transmission Date: 20210717
  Serious: Yes (Hospitalization, Other)
  Sender: FDA-Public Use
  Company Number: LB-ABBVIE-21K-093-3850366-00

PATIENT
  Age: 42 Year
  Sex: Male
  Weight: 82 kg

DRUGS (9)
  1. NEXAVAR [Concomitant]
     Active Substance: SORAFENIB
     Indication: PRODUCT USED FOR UNKNOWN INDICATION
  2. VALTREX [Concomitant]
     Active Substance: VALACYCLOVIR HYDROCHLORIDE
     Indication: PRODUCT USED FOR UNKNOWN INDICATION
  3. NEXIUM [Concomitant]
     Active Substance: ESOMEPRAZOLE MAGNESIUM
     Indication: PRODUCT USED FOR UNKNOWN INDICATION
  4. VENCLEXTA [Suspect]
     Active Substance: VENETOCLAX
     Indication: ACUTE MYELOID LEUKAEMIA
     Dosage: 100 MILLIGRAM PER DAY FOR SEVEN DAYS EACH 28 DAYS
     Route: 048
     Dates: start: 20200609, end: 20200921
  5. BACTRIM [Concomitant]
     Active Substance: SULFAMETHOXAZOLE\TRIMETHOPRIM
     Indication: PRODUCT USED FOR UNKNOWN INDICATION
  6. VIDAZA [Concomitant]
     Active Substance: AZACITIDINE
     Indication: PRODUCT USED FOR UNKNOWN INDICATION
     Dates: start: 202005, end: 20200921
  7. AMLOR [Concomitant]
     Active Substance: AMLODIPINE BESYLATE
     Indication: PRODUCT USED FOR UNKNOWN INDICATION
  8. VENCLEXTA [Suspect]
     Active Substance: VENETOCLAX
     Dosage: 100 MILLIGRAM PER DAY FOR SEVEN DAYS EACH 28 DAYS
     Route: 048
     Dates: start: 20201003, end: 202105
  9. VIDAZA [Concomitant]
     Active Substance: AZACITIDINE
     Dates: start: 20201003

REACTIONS (3)
  - Fatigue [Recovering/Resolving]
  - Acute myeloid leukaemia recurrent [Recovered/Resolved]
  - Bone marrow transplant [Recovered/Resolved]

NARRATIVE: CASE EVENT DATE: 202104
